FAERS Safety Report 4412113-9 (Version None)
Quarter: 2004Q3

REPORT INFORMATION
  Report Type: 
  Country: None (occurrence: None)
  Receive Date: 20040730
  Receipt Date: 20040719
  Transmission Date: 20050211
  Serious: Yes (Other)
  Sender: FDA-Public Use
  Company Number: NL-GLAXOSMITHKLINE-B0340033A

PATIENT
  Age: 75 Year
  Sex: Male

DRUGS (6)
  1. DUTASTERIDE [Suspect]
     Indication: BENIGN PROSTATIC HYPERPLASIA
     Dosage: .5MG PER DAY
     Dates: start: 20040506, end: 20040507
  2. COZAAR [Concomitant]
     Dosage: 1TAB TWICE PER DAY
  3. EMCOR [Concomitant]
     Dosage: 1TAB PER DAY
  4. LANOXIN [Concomitant]
     Dosage: 1TAB PER DAY
  5. XATRAL [Concomitant]
     Dosage: 1TAB PER DAY
  6. ACENOCOUMAROL [Concomitant]

REACTIONS (5)
  - CHEST PAIN [None]
  - DIZZINESS [None]
  - DYSPEPSIA [None]
  - STOMACH DISCOMFORT [None]
  - VISUAL ACUITY REDUCED [None]
